FAERS Safety Report 4407530-7 (Version None)
Quarter: 2004Q3

REPORT INFORMATION
  Report Type: 
  Country: None (occurrence: None)
  Receive Date: 20040721
  Receipt Date: 20040705
  Transmission Date: 20050211
  Serious: No
  Sender: FDA-Public Use
  Company Number: D01200402350

PATIENT
  Age: 75 Year
  Sex: Female

DRUGS (7)
  1. FONDAPARINUX [Suspect]
     Indication: ANGINA UNSTABLE
     Dosage: 2.5 MG QD SUBCUTANEOUS
     Route: 058
     Dates: start: 20031030, end: 20031102
  2. ASPIRIN [Concomitant]
  3. CLOPIDOGREL [Concomitant]
  4. METOPROLOL TARTRATE [Concomitant]
  5. IMDUR [Concomitant]
  6. LISINOPRIL [Concomitant]
  7. SIMVASTATIN [Concomitant]

REACTIONS (3)
  - ARTERIAL THROMBOSIS [None]
  - CATHETER RELATED COMPLICATION [None]
  - CORONARY ARTERY STENOSIS [None]
